FAERS Safety Report 7930954-8 (Version None)
Quarter: 2011Q4

REPORT INFORMATION
  Report Type: 
  Country: None (occurrence: None)
  Receive Date: 20111121
  Receipt Date: 20111114
  Transmission Date: 20120403
  Serious: No
  Sender: FDA-Public Use
  Company Number: US-PFIZER INC-2011280965

PATIENT
  Age: 48 Year
  Sex: Female

DRUGS (1)
  1. TETRACYCLINE HCL [Suspect]
     Route: 064

REACTIONS (2)
  - TOOTH DISCOLOURATION [None]
  - MATERNAL EXPOSURE TIMING UNSPECIFIED [None]
